FAERS Safety Report 9467135 (Version 3)
Quarter: 2013Q4

REPORT INFORMATION
  Report Type: Spontaneous
  Country: JP (occurrence: JP)
  Receive Date: 20130820
  Receipt Date: 20131025
  Transmission Date: 20140711
  Serious: Yes (Death, Life-Threatening)
  Sender: FDA-Public Use
  Company Number: JP-ROCHE-1252496

PATIENT
  Age: 56 Year
  Sex: Female
  Weight: 51 kg

DRUGS (5)
  1. AVASTIN [Suspect]
     Indication: BREAST CANCER METASTATIC
     Dosage: DOSAGE IS UNCERTAIN.
     Route: 041
     Dates: start: 20130515, end: 20130626
  2. PACLITAXEL [Suspect]
     Indication: BREAST CANCER METASTATIC
     Route: 041
     Dates: start: 200911
  3. PACLITAXEL [Suspect]
     Route: 041
     Dates: start: 201009
  4. PACLITAXEL [Suspect]
     Route: 041
     Dates: start: 201106
  5. PACLITAXEL [Suspect]
     Route: 041
     Dates: start: 20130515, end: 20130626

REACTIONS (3)
  - Respiratory tract haemorrhage [Fatal]
  - Respiratory failure [Fatal]
  - White blood cell count decreased [Not Recovered/Not Resolved]
